FAERS Safety Report 5222973-X (Version None)
Quarter: 2007Q1

REPORT INFORMATION
  Report Type: 
  Country: None (occurrence: None)
  Receive Date: 20070129
  Receipt Date: 20070117
  Transmission Date: 20070707
  Serious: Yes (Other)
  Sender: FDA-Public Use
  Company Number: JP-PFIZER INC-2006134925

PATIENT
  Age: 62 Year
  Sex: Female

DRUGS (1)
  1. VFEND [Suspect]
     Dosage: DAILY DOSE:200MG
     Route: 048

REACTIONS (2)
  - GENERALISED OEDEMA [None]
  - STOMATITIS [None]
